FAERS Safety Report 8623457-9 (Version None)
Quarter: 2012Q3

REPORT INFORMATION
  Report Type: 
  Country: None (occurrence: None)
  Receive Date: 20120824
  Receipt Date: 20120824
  Transmission Date: 20120928
  Serious: Yes (Hospitalization)
  Sender: FDA-Public Use
  Company Number: None

PATIENT
  Age: 54 Year
  Sex: Female
  Weight: 76.3 kg

DRUGS (2)
  1. FLUOXETINE [Suspect]
     Indication: FIBROMYALGIA
     Dosage: 20MG	DAILY	PO
     Route: 048
  2. IBUPROFEN [Suspect]
     Indication: PAIN
     Dosage: 3 TO 6 TABS DAIIY PO
     Route: 048

REACTIONS (3)
  - DYSPNOEA [None]
  - UPPER GASTROINTESTINAL HAEMORRHAGE [None]
  - OEDEMA PERIPHERAL [None]
